FAERS Safety Report 11040074 (Version 3)
Quarter: 2017Q1

REPORT INFORMATION
  Report Type: Spontaneous
  Country: US (occurrence: US)
  Receive Date: 20150416
  Receipt Date: 20170323
  Transmission Date: 20170428
  Serious: No
  Sender: FDA-Public Use
  Company Number: US-ASTRAZENECA-2013SE65868

PATIENT
  Age: 24328 Day
  Sex: Female
  Weight: 56.2 kg

DRUGS (11)
  1. BYETTA [Suspect]
     Active Substance: EXENATIDE
     Indication: TYPE 2 DIABETES MELLITUS
     Dosage: NON-AZ PRODUCT, 250 MCG/ ML,  5 MCG, EVERY DAY
     Route: 058
     Dates: end: 201408
  2. BYETTA [Suspect]
     Active Substance: EXENATIDE
     Indication: TYPE 2 DIABETES MELLITUS
     Route: 058
  3. GLYBURIDE. [Suspect]
     Active Substance: GLYBURIDE
     Route: 048
  4. LOVASTATIN. [Concomitant]
     Active Substance: LOVASTATIN
     Indication: BLOOD CHOLESTEROL
     Route: 048
     Dates: start: 2012
  5. BYETTA [Suspect]
     Active Substance: EXENATIDE
     Indication: TYPE 2 DIABETES MELLITUS
     Dosage: NON-AZ PRODUCT, 250 MCG/ ML,  5 MCG, EVERY DAY
     Route: 058
     Dates: start: 20130823, end: 20130824
  6. LISINOPRIL. [Suspect]
     Active Substance: LISINOPRIL
     Route: 048
  7. BYETTA [Suspect]
     Active Substance: EXENATIDE
     Indication: TYPE 2 DIABETES MELLITUS
     Dosage: NON-AZ PRODUCT, 5 MCG, TWICE DAILY
     Route: 065
     Dates: start: 201410
  8. MULTIVITAMIN [Concomitant]
     Active Substance: VITAMINS
  9. NORVASC [Concomitant]
     Active Substance: AMLODIPINE BESYLATE
  10. AMLODIPINE [Concomitant]
     Active Substance: AMLODIPINE BESYLATE
     Route: 048
  11. VITAMIN D [Concomitant]
     Active Substance: CHOLECALCIFEROL
     Indication: MENOPAUSAL SYMPTOMS
     Route: 048

REACTIONS (8)
  - Drug dose omission [Not Recovered/Not Resolved]
  - Blood glucose increased [Not Recovered/Not Resolved]
  - Product quality issue [Unknown]
  - Drug hypersensitivity [Unknown]
  - Nervousness [Recovering/Resolving]
  - Blood glucose decreased [Recovering/Resolving]
  - Hypoglycaemia [Recovered/Resolved]
  - Weight decreased [Unknown]

NARRATIVE: CASE EVENT DATE: 20130823
